FAERS Safety Report 19565074 (Version 2)
Quarter: 2023Q4

REPORT INFORMATION
  Report Type: Spontaneous
  Country: KR (occurrence: KR)
  Receive Date: 20210714
  Receipt Date: 20231122
  Transmission Date: 20240109
  Serious: Yes (Death, Other)
  Sender: FDA-Public Use
  Company Number: KR-VALIDUS PHARMACEUTICALS LLC-VDP-2021-000071

PATIENT

DRUGS (8)
  1. LASIX [Suspect]
     Active Substance: FUROSEMIDE
     Indication: Product used for unknown indication
     Dosage: ATINN(S) FOR ISF
     Route: 065
  2. OPSUMIT [Concomitant]
     Active Substance: MACITENTAN
     Indication: Product used for unknown indication
     Dosage: 10 MILLIGRAM
     Route: 065
  3. LOSARTAN [Concomitant]
     Active Substance: LOSARTAN
     Indication: Hypertension
     Dosage: 25 MILLIGRAM, QD
     Route: 065
  4. TORSEMIDE [Concomitant]
     Active Substance: TORSEMIDE
     Indication: Hypertension
     Dosage: 5 MILLIGRAM, QD
     Route: 065
  5. PREDNISOLONE [Concomitant]
     Active Substance: PREDNISOLONE
     Indication: Systemic lupus erythematosus
     Dosage: UNK
     Route: 065
  6. PREDNISOLONE [Concomitant]
     Active Substance: PREDNISOLONE
     Indication: Interstitial lung disease
  7. HYDROXYCHLOROQUINE [Concomitant]
     Active Substance: HYDROXYCHLOROQUINE
     Indication: Systemic lupus erythematosus
     Dosage: UNK
     Route: 065
  8. HYDROXYCHLOROQUINE [Concomitant]
     Active Substance: HYDROXYCHLOROQUINE
     Indication: Interstitial lung disease

REACTIONS (6)
  - Multiple organ dysfunction syndrome [Fatal]
  - Pulmonary hypertension [Unknown]
  - Cardiac failure [Unknown]
  - Glomerular filtration rate decreased [Unknown]
  - Dyspnoea [Unknown]
  - Azotaemia [Unknown]
